FAERS Safety Report 21494026 (Version 7)
Quarter: 2023Q1

REPORT INFORMATION
  Report Type: Report from Study
  Country: GB (occurrence: GB)
  Receive Date: 20221021
  Receipt Date: 20230301
  Transmission Date: 20230418
  Serious: Yes (Congenital Anomaly, Other)
  Sender: FDA-Public Use
  Company Number: GB-LAURUS LABS LIMITED-2022LAU000017

PATIENT
  Age: 0 Year
  Sex: Female
  Weight: 2.48 kg

DRUGS (12)
  1. EMTRICITABINE\TENOFOVIR DISOPROXIL [Suspect]
     Active Substance: EMTRICITABINE\TENOFOVIR DISOPROXIL
     Indication: Product used for unknown indication
     Dosage: UNK
     Route: 064
     Dates: start: 20210719
  2. ISENTRESS [Suspect]
     Active Substance: RALTEGRAVIR POTASSIUM
     Indication: Product used for unknown indication
     Dosage: UNK, QD
     Route: 064
     Dates: start: 20210719, end: 20211228
  3. TIVICAY [Suspect]
     Active Substance: DOLUTEGRAVIR SODIUM
     Indication: Product used for unknown indication
     Dosage: UNK
     Route: 064
     Dates: start: 20220125
  4. STRIBILD [Suspect]
     Active Substance: COBICISTAT\ELVITEGRAVIR\EMTRICITABINE\TENOFOVIR DISOPROXIL FUMARATE
     Indication: Product used for unknown indication
     Dosage: UNK
     Route: 064
     Dates: end: 20210718
  5. TENOFOVIR DISOPROXIL FUMARATE [Suspect]
     Active Substance: TENOFOVIR DISOPROXIL FUMARATE
     Indication: Product used for unknown indication
     Dosage: UNK
     Route: 064
     Dates: start: 20210707
  6. REYATAZ [Suspect]
     Active Substance: ATAZANAVIR SULFATE
     Indication: Product used for unknown indication
     Dosage: UNK
     Route: 064
     Dates: start: 20211229
  7. RITONAVIR [Suspect]
     Active Substance: RITONAVIR
     Indication: Product used for unknown indication
     Dosage: UNK
     Route: 064
     Dates: start: 20211229
  8. ELVITEGRAVIR [Suspect]
     Active Substance: ELVITEGRAVIR
     Indication: Product used for unknown indication
     Dosage: UNK
     Route: 064
     Dates: start: 20210718
  9. EMTRICITABINE\TENOFOVIR [Suspect]
     Active Substance: EMTRICITABINE\TENOFOVIR
     Indication: Product used for unknown indication
     Route: 064
  10. RALTEGRAVIR [Suspect]
     Active Substance: RALTEGRAVIR
     Indication: Product used for unknown indication
     Dosage: UNK
     Route: 064
     Dates: start: 20210719, end: 20211228
  11. ATAZANAVIR [Concomitant]
     Active Substance: ATAZANAVIR
     Indication: Product used for unknown indication
     Route: 065
  12. DOLUTEGRAVIR [Concomitant]
     Active Substance: DOLUTEGRAVIR
     Indication: Product used for unknown indication
     Route: 065

REACTIONS (6)
  - Renal dysplasia [Not Recovered/Not Resolved]
  - Single functional kidney [Not Recovered/Not Resolved]
  - Renal aplasia [Unknown]
  - Low birth weight baby [Unknown]
  - Foetal exposure during pregnancy [Unknown]
  - Foetal exposure during delivery [Unknown]

NARRATIVE: CASE EVENT DATE: 20220221
